FAERS Safety Report 25396031 (Version 5)
Quarter: 2025Q4

REPORT INFORMATION
  Report Type: Report from Study
  Country: US (occurrence: US)
  Receive Date: 20250604
  Receipt Date: 20251017
  Transmission Date: 20260117
  Serious: Yes (Hospitalization, Other)
  Sender: TAKEDA
  Company Number: US-TAKEDA-2025TUS050855

PATIENT
  Age: 61 Year
  Sex: Male
  Weight: 77.098 kg

DRUGS (3)
  1. FRUQUINTINIB [Suspect]
     Active Substance: FRUQUINTINIB
     Indication: Colon cancer
     Dosage: 4 MILLIGRAM
  2. FRUQUINTINIB [Suspect]
     Active Substance: FRUQUINTINIB
     Dosage: 4 MILLIGRAM
  3. FRUQUINTINIB [Suspect]
     Active Substance: FRUQUINTINIB
     Dosage: 4 MILLIGRAM

REACTIONS (3)
  - Small intestinal obstruction [Unknown]
  - Gallbladder obstruction [Unknown]
  - Rash erythematous [Recovering/Resolving]
